FAERS Safety Report 5066700-8 (Version None)
Quarter: 2006Q3

REPORT INFORMATION
  Report Type: 
  Country: None (occurrence: None)
  Receive Date: 20060801
  Receipt Date: 20060720
  Transmission Date: 20061208
  Serious: Yes (Other)
  Sender: FDA-Public Use
  Company Number: ES-GLAXOSMITHKLINE-B0432219A

PATIENT
  Age: 74 Year
  Sex: Male

DRUGS (1)
  1. DUTASTERIDE [Suspect]
     Indication: PROSTATIC SPECIFIC ANTIGEN
     Route: 065
     Dates: start: 19970101

REACTIONS (1)
  - GASTRIC DISORDER [None]
